FAERS Safety Report 24943421 (Version 1)
Quarter: 2025Q1

REPORT INFORMATION
  Report Type: Report from Study
  Country: CH (occurrence: CH)
  Receive Date: 20250207
  Receipt Date: 20250207
  Transmission Date: 20250408
  Serious: Yes (Life-Threatening, Hospitalization, Other)
  Sender: MYLAN
  Company Number: None

PATIENT
  Age: 22 Year
  Sex: Female

DRUGS (2)
  1. XANAX [Suspect]
     Active Substance: ALPRAZOLAM
     Indication: Adjustment disorder
     Route: 048
     Dates: start: 202310
  2. KETALGIN NOS [Suspect]
     Active Substance: KETOROLAC TROMETHAMINE OR METHADONE
     Indication: Product used for unknown indication
     Route: 048
     Dates: start: 202310

REACTIONS (6)
  - Toxicity to various agents [Recovered/Resolved]
  - Cardiac arrest [Recovered/Resolved]
  - Pneumonia aspiration [Recovering/Resolving]
  - Acute kidney injury [Unknown]
  - Hypoglycaemia [Recovered/Resolved]
  - Seizure [Recovering/Resolving]

NARRATIVE: CASE EVENT DATE: 20231020
